FAERS Safety Report 6055850-5 (Version None)
Quarter: 2009Q1

REPORT INFORMATION
  Report Type: 
  Country: None (occurrence: None)
  Receive Date: 20090128
  Receipt Date: 20090120
  Transmission Date: 20090719
  Serious: Yes (Hospitalization)
  Sender: FDA-Public Use
  Company Number: FR-ASTRAZENECA-2009CG00239

PATIENT
  Age: 1039 Month
  Sex: Male

DRUGS (3)
  1. CRESTOR [Suspect]
     Route: 048
  2. PARIET [Suspect]
     Route: 048
     Dates: end: 20081202
  3. NISISCO [Suspect]
     Route: 048
     Dates: end: 20081113

REACTIONS (2)
  - ECZEMA [None]
  - EXFOLIATIVE RASH [None]
